FAERS Safety Report 22188394 (Version 1)
Quarter: 2023Q2

REPORT INFORMATION
  Report Type: Spontaneous
  Country: US (occurrence: US)
  Receive Date: 20230408
  Receipt Date: 20230408
  Transmission Date: 20230722
  Serious: No
  Sender: FDA-Public Use
  Company Number: US-JNJFOC-20230375142

PATIENT
  Sex: Female

DRUGS (1)
  1. WOMENS ROGAINE UNSCENTED [Suspect]
     Active Substance: MINOXIDIL
     Indication: Alopecia
     Dosage: HALF A CAPFUL, A LITTLE LESS
     Route: 061
     Dates: start: 20230327

REACTIONS (2)
  - Application site pain [Unknown]
  - Underdose [Unknown]

NARRATIVE: CASE EVENT DATE: 20230327
